FAERS Safety Report 22830038 (Version 3)
Quarter: 2024Q3

REPORT INFORMATION
  Report Type: Spontaneous
  Country: US (occurrence: US)
  Receive Date: 20230816
  Receipt Date: 20240731
  Transmission Date: 20241016
  Serious: No
  Sender: AURINIA PHARMACEUTICALS
  Company Number: US-AURINIA PHARMACEUTICALS INC.-AUR-003066

PATIENT
  Age: 65 Year
  Sex: Female
  Weight: 68 kg

DRUGS (24)
  1. LUPKYNIS [Suspect]
     Active Substance: VOCLOSPORIN
     Indication: Lupus nephritis
     Dosage: 23.7 MILLIGRAM, BID
     Route: 048
     Dates: start: 20230221
  2. LUPKYNIS [Suspect]
     Active Substance: VOCLOSPORIN
     Dosage: 15.8 MILLIGRAM, BID
     Route: 048
     Dates: start: 20230217
  3. LUPKYNIS [Suspect]
     Active Substance: VOCLOSPORIN
     Dosage: 15.8 MILLIGRAM, BID
     Route: 048
     Dates: start: 20230324
  4. LUPKYNIS [Suspect]
     Active Substance: VOCLOSPORIN
     Dosage: 7.9 MILLIGRAM, BID
     Route: 048
     Dates: start: 20230220
  5. LUPKYNIS [Suspect]
     Active Substance: VOCLOSPORIN
     Dosage: 7.9 MILLIGRAM, BID
     Route: 048
     Dates: start: 20230301
  6. NORVASC [Concomitant]
     Active Substance: AMLODIPINE BESYLATE
     Indication: Hypertension
     Dosage: 5 MILLIGRAM, QD
     Route: 048
     Dates: start: 20231107
  7. VITAMIN C [Concomitant]
     Active Substance: ASCORBIC ACID
     Indication: Product used for unknown indication
     Dosage: 500 MILLIGRAM, QD
     Route: 048
  8. ST. JOSEPH ASPIRIN [Concomitant]
     Indication: Product used for unknown indication
     Dosage: 81 MILLIGRAM, QD
     Route: 048
  9. ZIAC [Concomitant]
     Active Substance: BISOPROLOL FUMARATE\HYDROCHLOROTHIAZIDE
     Indication: Hypertension
     Dosage: 1 TABLET BY MOUTH TWICE DAILY 5-6.25 MG
     Route: 048
     Dates: start: 20231107
  10. VITAMIN D3 [Concomitant]
     Active Substance: CHOLECALCIFEROL
     Indication: Product used for unknown indication
     Dosage: 25 UNK, QD
  11. CYANOCOBALAMIN [Concomitant]
     Active Substance: CYANOCOBALAMIN
     Indication: Product used for unknown indication
     Dosage: 500 MICROGRAM, QD
     Route: 048
  12. ESOMEPRAZOLE SODIUM [Concomitant]
     Active Substance: ESOMEPRAZOLE SODIUM
     Indication: Product used for unknown indication
     Dosage: 20 MILLIGRAM, QD
     Route: 048
  13. FERROUS SULFATE [Concomitant]
     Active Substance: FERROUS SULFATE
     Indication: Product used for unknown indication
     Dosage: 1 TABLET BY MOUTH 2 TIMES A WEEK
     Route: 048
  14. NEURONTIN [Concomitant]
     Active Substance: GABAPENTIN
     Indication: Product used for unknown indication
     Dosage: 300 MILLIGRAM, TID PRN
     Route: 048
  15. HYDROXYCHLOROQUINE DIPHOSPHATE [Concomitant]
     Active Substance: HYDROXYCHLOROQUINE DIPHOSPHATE
     Indication: Systemic lupus erythematosus
     Dosage: 200 MILLIGRAM, BID
     Route: 048
     Dates: start: 20231205
  16. COZAAR [Concomitant]
     Active Substance: LOSARTAN POTASSIUM
     Indication: Lupus nephritis
     Dosage: 100 MILLIGRAM, QD
     Route: 048
     Dates: start: 20230220
  17. COZAAR [Concomitant]
     Active Substance: LOSARTAN POTASSIUM
     Indication: Hypertension
  18. MAGNESIUM OXIDE [Concomitant]
     Active Substance: MAGNESIUM OXIDE
     Indication: Product used for unknown indication
     Dosage: 400 MILLIGRAM, BID
     Route: 048
     Dates: start: 20180601
  19. VITAMINS NOS [Concomitant]
     Active Substance: VITAMINS
     Indication: Product used for unknown indication
     Dosage: 1 TABLET ONCE A DAY
     Route: 048
  20. CELLCEPT [Concomitant]
     Active Substance: MYCOPHENOLATE MOFETIL
     Indication: Lupus nephritis
     Dosage: 1000 MILLIGRAM, BID
     Route: 048
     Dates: start: 20230306
  21. CELLCEPT [Concomitant]
     Active Substance: MYCOPHENOLATE MOFETIL
     Indication: Systemic lupus erythematosus
  22. FISH OIL [Concomitant]
     Active Substance: FISH OIL
     Indication: Product used for unknown indication
     Dosage: 1000 MILLIGRAM, QD
     Route: 048
  23. VITAMIN E [Concomitant]
     Active Substance: .ALPHA.-TOCOPHEROL
     Indication: Product used for unknown indication
     Dosage: 1 TABLET ONCE PER DAY
     Route: 048
  24. ZINC ACETATE [Concomitant]
     Active Substance: ZINC ACETATE
     Indication: Product used for unknown indication
     Dosage: 50 MILLIGRAM, QD
     Route: 048

REACTIONS (12)
  - Hypertension [Unknown]
  - Weight decreased [Unknown]
  - Vomiting [Unknown]
  - Diarrhoea [Recovered/Resolved]
  - Ear infection [Not Recovered/Not Resolved]
  - Protein total increased [Unknown]
  - Sinus congestion [Not Recovered/Not Resolved]
  - Glycosylated haemoglobin increased [Unknown]
  - Blood phosphorus increased [Unknown]
  - Anaemia [Unknown]
  - Blood creatinine increased [Unknown]
  - Rash [Unknown]

NARRATIVE: CASE EVENT DATE: 20230221
